FAERS Safety Report 22941772 (Version 3)
Quarter: 2023Q4

REPORT INFORMATION
  Report Type: Spontaneous
  Country: JP (occurrence: JP)
  Receive Date: 20230914
  Receipt Date: 20231125
  Transmission Date: 20240110
  Serious: Yes (Hospitalization, Other)
  Sender: FDA-Public Use
  Company Number: JP-CHUGAI-2023032625

PATIENT
  Age: 68 Year
  Sex: Male
  Weight: 55.8 kg

DRUGS (5)
  1. ACTEMRA [Suspect]
     Active Substance: TOCILIZUMAB
     Indication: Castleman^s disease
     Dosage: 640 MILLIGRAM, ADMINISTERED ONLY TWICE
     Route: 041
     Dates: start: 20230804, end: 20230815
  2. PREDNISOLONE [Suspect]
     Active Substance: PREDNISOLONE
     Indication: Product used for unknown indication
     Dosage: 60 MILLIGRAM
     Route: 065
     Dates: start: 20230805
  3. FUROSEMIDE [Concomitant]
     Active Substance: FUROSEMIDE
     Dates: start: 20230802
  4. SAMSCA [Concomitant]
     Active Substance: TOLVAPTAN
     Dosage: UNK
     Dates: start: 20230815
  5. RITUXIMAB [Concomitant]
     Active Substance: RITUXIMAB
     Dosage: UNK, ONCE/WEEK
     Route: 065
     Dates: start: 20230831

REACTIONS (4)
  - Diverticular perforation [Recovered/Resolved with Sequelae]
  - SARS-CoV-2 test positive [Unknown]
  - Cytomegalovirus test positive [Recovered/Resolved]
  - Off label use [Unknown]

NARRATIVE: CASE EVENT DATE: 20230810
